FAERS Safety Report 19589102 (Version 1)
Quarter: 2021Q3

REPORT INFORMATION
  Report Type: Spontaneous
  Country: US (occurrence: US)
  Receive Date: 20210721
  Receipt Date: 20210721
  Transmission Date: 20211014
  Serious: No
  Sender: FDA-Public Use
  Company Number: US-ASTRAZENECA-2021A553298

PATIENT
  Age: 67 Year
  Sex: Female
  Weight: 80.7 kg

DRUGS (3)
  1. PLAVIX [Concomitant]
     Active Substance: CLOPIDOGREL BISULFATE
     Dates: start: 2012
  2. BRILINTA [Suspect]
     Active Substance: TICAGRELOR
     Indication: MYOCARDIAL INFARCTION
     Dosage: UNKNOWN UNKNOWN
     Route: 048
  3. BRILINTA [Suspect]
     Active Substance: TICAGRELOR
     Indication: STENT PLACEMENT
     Dosage: UNKNOWN UNKNOWN
     Route: 048

REACTIONS (9)
  - Respiration abnormal [Unknown]
  - Dysphonia [Not Recovered/Not Resolved]
  - Thyroid mass [Recovered/Resolved]
  - Laryngeal discomfort [Recovered/Resolved]
  - Choking sensation [Unknown]
  - Aspiration [Unknown]
  - Cough [Recovered/Resolved]
  - Incision site pain [Not Recovered/Not Resolved]
  - Dyspnoea [Recovered/Resolved]

NARRATIVE: CASE EVENT DATE: 2020
